FAERS Safety Report 25272033 (Version 1)
Quarter: 2025Q2

REPORT INFORMATION
  Report Type: Spontaneous
  Country: CN (occurrence: CN)
  Receive Date: 20250506
  Receipt Date: 20250506
  Transmission Date: 20250716
  Serious: Yes (Other)
  Sender: AMGEN
  Company Number: CN-AMGEN-CHNSP2025086425

PATIENT
  Age: 54 Year
  Sex: Male

DRUGS (1)
  1. REPATHA [Suspect]
     Active Substance: EVOLOCUMAB
     Indication: Hyperlipidaemia
     Dosage: 140 MILLIGRAM, Q2WK
     Route: 058
     Dates: start: 20241201, end: 20250331

REACTIONS (2)
  - Necrosis [Recovering/Resolving]
  - Skin induration [Recovering/Resolving]

NARRATIVE: CASE EVENT DATE: 20250404
